FAERS Safety Report 8184762-6 (Version None)
Quarter: 2012Q1

REPORT INFORMATION
  Report Type: 
  Country: None (occurrence: None)
  Receive Date: 20120305
  Receipt Date: 20120305
  Transmission Date: 20120608
  Serious: Yes (Other)
  Sender: FDA-Public Use
  Company Number: None

PATIENT
  Age: 48 Year
  Sex: Male
  Weight: 79.378 kg

DRUGS (1)
  1. DEPAKOTE [Suspect]
     Indication: MIGRAINE
     Dosage: 500MG
     Route: 048
     Dates: start: 20080721, end: 20110801

REACTIONS (1)
  - BUNDLE BRANCH BLOCK LEFT [None]
